FAERS Safety Report 12430903 (Version 1)
Quarter: 2016Q2

REPORT INFORMATION
  Report Type: Spontaneous
  Country: CZ (occurrence: CZ)
  Receive Date: 20160602
  Receipt Date: 20160602
  Transmission Date: 20160815
  Serious: Yes (Hospitalization, Other)
  Sender: FDA-Public Use
  Company Number: PHHY2016CZ074658

PATIENT
  Sex: Male

DRUGS (3)
  1. CISPLATIN. [Suspect]
     Active Substance: CISPLATIN
     Indication: THYROID CANCER
     Route: 042
     Dates: start: 20140131, end: 2014
  2. DOXORUBICIN [Suspect]
     Active Substance: DOXORUBICIN
     Indication: THYROID CANCER
     Route: 042
     Dates: start: 20140131, end: 2014
  3. DENOSUMAB [Concomitant]
     Active Substance: DENOSUMAB
     Indication: PRODUCT USED FOR UNKNOWN INDICATION
     Route: 065
     Dates: start: 20140131

REACTIONS (5)
  - Thrombocytopenia [Unknown]
  - Hypocalcaemia [Unknown]
  - Nausea [Unknown]
  - Renal function test abnormal [Unknown]
  - Anaemia [Unknown]

NARRATIVE: CASE EVENT DATE: 20140430
